FAERS Safety Report 7902033-7 (Version None)
Quarter: 2011Q4

REPORT INFORMATION
  Report Type: 
  Country: None (occurrence: None)
  Receive Date: 20111108
  Receipt Date: 20111028
  Transmission Date: 20120403
  Serious: Yes (Hospitalization, Congenital Anomaly)
  Sender: FDA-Public Use
  Company Number: US-GLAXOSMITHKLINE-A0950697A

PATIENT
  Sex: Male
  Weight: 2.4 kg

DRUGS (3)
  1. PAXIL [Suspect]
     Indication: PRODUCT USED FOR UNKNOWN INDICATION
     Dosage: 40MG IN THE MORNING
     Route: 064
  2. MULTI-VITAMINS [Concomitant]
  3. FIORICET [Concomitant]

REACTIONS (3)
  - TRICUSPID VALVE INCOMPETENCE [None]
  - ATRIAL SEPTAL DEFECT [None]
  - FOETAL EXPOSURE DURING PREGNANCY [None]
